FAERS Safety Report 19020959 (Version 1)
Quarter: 2021Q1

REPORT INFORMATION
  Report Type: Report from Study
  Country: TW (occurrence: TW)
  Receive Date: 20210317
  Receipt Date: 20210317
  Transmission Date: 20210420
  Serious: Yes (Hospitalization)
  Sender: FDA-Public Use
  Company Number: TW-BAYER-2020-260815

PATIENT
  Age: 80 Year
  Sex: Male
  Weight: 83 kg

DRUGS (59)
  1. DEXALTIN [Concomitant]
     Active Substance: DEXAMETHASONE
     Dosage: 1 DF, QD
     Dates: start: 20201211
  2. PERIACTIN [Concomitant]
     Active Substance: CYPROHEPTADINE HYDROCHLORIDE
     Dosage: 1 DF, TID
     Route: 048
     Dates: start: 20201012
  3. TRACETON [Concomitant]
     Dosage: 1 DF, TID
     Route: 048
     Dates: start: 20201005
  4. TOPSYM [Concomitant]
     Dosage: 1 DF, BID
     Dates: start: 20201211
  5. TOPSYM [Concomitant]
     Dosage: 1 DF, BID
     Dates: start: 20200914
  6. ZOLADEX [Concomitant]
     Active Substance: GOSERELIN ACETATE
     Dosage: 1 DF
     Dates: start: 20201211
  7. ZOLADEX [Concomitant]
     Active Substance: GOSERELIN ACETATE
     Dosage: 1 DF
     Dates: start: 20201012
  8. MAG [MAGNESIUM CHLORIDE] [Concomitant]
     Dosage: 2 DF, QID
     Route: 048
     Dates: start: 20200907
  9. MENTAX [Concomitant]
     Active Substance: BUTENAFINE HYDROCHLORIDE
     Dosage: 1 DF, BID
     Dates: start: 20170912
  10. ACTRAPID [Concomitant]
     Active Substance: INSULIN HUMAN
     Dosage: 4 IU TIDA SC
     Dates: start: 20201202
  11. GALVUSMET [Concomitant]
     Active Substance: METFORMIN HYDROCHLORIDE\VILDAGLIPTIN
     Dosage: 1 DF, BID
     Route: 048
     Dates: start: 20201127
  12. PERIACTIN [Concomitant]
     Active Substance: CYPROHEPTADINE HYDROCHLORIDE
     Dosage: 1 DF, TID
     Route: 048
     Dates: start: 20201109, end: 20201130
  13. PERIACTIN [Concomitant]
     Active Substance: CYPROHEPTADINE HYDROCHLORIDE
     Dosage: 1 DF, TID
     Route: 048
     Dates: start: 20201005
  14. TOPSYM [Concomitant]
     Dosage: 1 DF, BID
     Dates: start: 20201105
  15. DEXAMETHASONE. [Concomitant]
     Active Substance: DEXAMETHASONE
     Dosage: 1 DF
     Route: 041
     Dates: start: 20201105
  16. MAG [MAGNESIUM CHLORIDE] [Concomitant]
     Dosage: 2 DF, QID
     Route: 048
     Dates: start: 20201105
  17. MAG [MAGNESIUM CHLORIDE] [Concomitant]
     Dosage: 2 DF, QID
     Route: 048
     Dates: start: 20201005
  18. MAG [MAGNESIUM CHLORIDE] [Concomitant]
     Dosage: 1 DF, QID
     Route: 048
     Dates: start: 20200819
  19. MENTAX [Concomitant]
     Active Substance: BUTENAFINE HYDROCHLORIDE
     Dosage: 1 DF, BID
     Dates: start: 20171003
  20. METHOTREXATE. [Concomitant]
     Active Substance: METHOTREXATE
     Dosage: 3 DF
     Route: 048
     Dates: start: 20201218
  21. MENTAX [Concomitant]
     Active Substance: BUTENAFINE HYDROCHLORIDE
     Dosage: 1 DF, BID
     Dates: start: 20170919
  22. PREDNISOLONE. [Concomitant]
     Active Substance: PREDNISOLONE
     Dosage: 5 MG, BID
     Route: 048
     Dates: start: 20201211
  23. SOLU?MEDROL [Concomitant]
     Active Substance: METHYLPREDNISOLONE SODIUM SUCCINATE
     Dosage: 1 DF, Q8HR
     Route: 041
     Dates: start: 20201127
  24. FEXOFENADINE [Concomitant]
     Active Substance: FEXOFENADINE HYDROCHLORIDE
     Dosage: 1 DF, BID
     Route: 048
     Dates: start: 20201012
  25. FEXOFENADINE [Concomitant]
     Active Substance: FEXOFENADINE HYDROCHLORIDE
     Dosage: 1 DF, BID
     Route: 048
     Dates: start: 20170912
  26. VIRLESS [ACICLOVIR] [Concomitant]
     Dosage: 1 DF, TID
     Dates: start: 20201211
  27. PERIACTIN [Concomitant]
     Active Substance: CYPROHEPTADINE HYDROCHLORIDE
     Dosage: 1 DF, TID
     Route: 048
     Dates: start: 20201211
  28. PERIACTIN [Concomitant]
     Active Substance: CYPROHEPTADINE HYDROCHLORIDE
     Dosage: 1 DF, TID
     Route: 048
     Dates: start: 20201105
  29. TOPSYM [Concomitant]
     Dosage: 1 DF, BID
     Dates: start: 20201005
  30. ZOLADEX [Concomitant]
     Active Substance: GOSERELIN ACETATE
     Dosage: 1 DF, QD
     Dates: start: 20200819
  31. VOLTAREN?SPRAY [Concomitant]
     Dosage: 1 DF, BID
     Route: 048
     Dates: start: 20201012
  32. FEXOFENADINE [Concomitant]
     Active Substance: FEXOFENADINE HYDROCHLORIDE
     Dosage: 1 DF,ST
     Route: 048
  33. TRACETON [Concomitant]
     Dosage: 1 DF, TID
     Route: 048
     Dates: start: 20200914
  34. TOPSYM [Concomitant]
     Dosage: 1 DF, BID
     Dates: start: 20201012
  35. DEXAMETHASONE. [Concomitant]
     Active Substance: DEXAMETHASONE
     Dosage: 1 DF, BID
     Route: 041
     Dates: start: 20201109, end: 20201129
  36. MAG [MAGNESIUM CHLORIDE] [Concomitant]
     Dosage: 2 DF, QID
     Route: 048
     Dates: start: 20201012
  37. GRISEOFULVIN. [Concomitant]
     Active Substance: GRISEOFULVIN
     Dosage: 2 DF, BID
     Route: 048
     Dates: start: 20170912
  38. POLARAMINE [Concomitant]
     Active Substance: DEXCHLORPHENIRAMINE MALEATE
     Dosage: 1 DF, QD
     Route: 048
     Dates: start: 20170912
  39. LIPANTHYL SUPRA [Concomitant]
     Active Substance: FENOFIBRATE
     Dosage: 0.5 DF,ST
     Route: 048
     Dates: start: 20201127
  40. MAG [MAGNESIUM CHLORIDE] [Concomitant]
     Dosage: 2 DF, QID
     Route: 048
     Dates: start: 20201109, end: 20201129
  41. MAG [MAGNESIUM CHLORIDE] [Concomitant]
     Dosage: 2 DF, QID
     Route: 048
     Dates: start: 20200914
  42. FAMOTIDINE. [Concomitant]
     Active Substance: FAMOTIDINE
     Dosage: 1 DF, BID
     Route: 048
     Dates: start: 20201127
  43. PREDNISOLONE. [Concomitant]
     Active Substance: PREDNISOLONE
     Dosage: 1 DF, BID
     Route: 048
     Dates: start: 20201109, end: 20201129
  44. PREDNISOLONE. [Concomitant]
     Active Substance: PREDNISOLONE
     Dosage: 1 DF, BID
     Route: 048
     Dates: start: 20201005
  45. FEXOFENADINE [Concomitant]
     Active Substance: FEXOFENADINE HYDROCHLORIDE
     Dosage: 1 DF, BID
     Route: 048
     Dates: start: 20170919
  46. TRACETON [Concomitant]
     Dosage: 1 DF, TID
     Dates: start: 20201105
  47. TOPSYM [Concomitant]
     Dosage: 1 DF, BID
     Dates: start: 20201109
  48. ZOLADEX [Concomitant]
     Active Substance: GOSERELIN ACETATE
     Dosage: 1 DF
     Dates: start: 20201109
  49. ZOLADEX [Concomitant]
     Active Substance: GOSERELIN ACETATE
     Dosage: 1 DF
     Dates: start: 20200914
  50. XGEVA [Concomitant]
     Active Substance: DENOSUMAB
     Dosage: 1 DF
     Dates: start: 20201012
  51. GRISEOFULVIN. [Concomitant]
     Active Substance: GRISEOFULVIN
     Dosage: 2 DF, BID
     Route: 048
     Dates: start: 20170919
  52. XOFIGO [Suspect]
     Active Substance: RADIUM RA-223 DICHLORIDE
     Indication: PROSTATE CANCER
     Dosage: 4400 KBQ
     Route: 042
     Dates: start: 20201104, end: 20201104
  53. PREDNISOLONE. [Concomitant]
     Active Substance: PREDNISOLONE
     Dosage: 1 DF, BID
     Route: 048
     Dates: start: 20201105
  54. PREDNISOLONE. [Concomitant]
     Active Substance: PREDNISOLONE
     Dosage: 1 DF, BID
     Route: 048
     Dates: start: 20201012
  55. FEXOFENADINE [Concomitant]
     Active Substance: FEXOFENADINE HYDROCHLORIDE
     Dosage: 1 DF, BID
     Route: 048
     Dates: start: 20201005
  56. TRACETON [Concomitant]
     Dosage: 1 DF, TID
     Route: 048
     Dates: start: 20201211
  57. TRACETON [Concomitant]
     Dosage: 1 DF, TID
     Route: 048
     Dates: start: 20201012
  58. TRACETON [Concomitant]
     Dosage: 1 DF, TID
     Route: 048
     Dates: start: 20200907
  59. TRACETON [Concomitant]
     Dosage: 1 DF, TID
     Route: 048
     Dates: start: 20200819

REACTIONS (1)
  - Urticaria [Recovering/Resolving]

NARRATIVE: CASE EVENT DATE: 20201126
